FAERS Safety Report 9194593 (Version 1)
Quarter: 2013Q1

REPORT INFORMATION
  Report Type: Spontaneous
  Country: None (occurrence: US)
  Receive Date: 20130327
  Receipt Date: 20130327
  Transmission Date: 20140127
  Serious: No
  Sender: FDA-Public Use
  Company Number: US-ALLERGAN-1206995US

PATIENT
  Age: 29 Year
  Sex: Female

DRUGS (2)
  1. LATISSE 0.03% [Suspect]
     Indication: GROWTH OF EYELASHES
     Dosage: UNK GTT, QHS
     Route: 061
     Dates: start: 2011
  2. PERMANENT MAKE -UP - EYEBROWS [Concomitant]

REACTIONS (5)
  - Wrong technique in drug usage process [Unknown]
  - Incorrect dose administered [Unknown]
  - Trichiasis [Unknown]
  - Madarosis [Unknown]
  - Hair growth abnormal [Unknown]
